FAERS Safety Report 6964787-6 (Version None)
Quarter: 2010Q3

REPORT INFORMATION
  Report Type: 
  Country: None (occurrence: None)
  Receive Date: 20100903
  Receipt Date: 20100826
  Transmission Date: 20110219
  Serious: No
  Sender: FDA-Public Use
  Company Number: US-PFIZER INC-2010108517

PATIENT
  Sex: Male
  Weight: 7.26 kg

DRUGS (9)
  1. CLEOCIN [Suspect]
     Indication: PNEUMOCYSTIS JIROVECI PNEUMONIA
     Dosage: 70 MG, UNK
     Route: 042
     Dates: start: 20100811
  2. DIFLUCAN [Concomitant]
     Dosage: UNK
  3. ATIVAN [Concomitant]
     Dosage: UNK
  4. METHADONE [Concomitant]
     Dosage: UNK
  5. PREDNISONE [Concomitant]
     Dosage: UNK
  6. PRIMAQUINE [Concomitant]
     Dosage: UNK
  7. MYLICON [Concomitant]
     Dosage: UNK
  8. ACETAMINOPHEN [Concomitant]
     Dosage: UNK
  9. ALBUTEROL [Concomitant]
     Dosage: UNK

REACTIONS (1)
  - RASH [None]
